FAERS Safety Report 6192629-8 (Version None)
Quarter: 2009Q2

REPORT INFORMATION
  Report Type: 
  Country: None (occurrence: None)
  Receive Date: 20090514
  Receipt Date: 20090514
  Transmission Date: 20091009
  Serious: No
  Sender: FDA-Public Use
  Company Number: None

PATIENT
  Sex: Female
  Weight: 140.9 kg

DRUGS (4)
  1. CISPLATIN [Suspect]
     Dosage: 100 MG
  2. DOXORUBIN HYDROCHLORIDE [Suspect]
     Dosage: 90 MG
  3. TAXOL [Suspect]
     Dosage: 320 MG
  4. NEULASTA [Suspect]
     Dosage: 6 MG

REACTIONS (1)
  - PULMONARY EMBOLISM [None]
